FAERS Safety Report 11216794 (Version 1)
Quarter: 2015Q2

REPORT INFORMATION
  Report Type: Spontaneous
  Country: US (occurrence: None)
  Receive Date: 20150623
  Receipt Date: 20150623
  Transmission Date: 20150821
  Serious: No
  Sender: FDA-Public Use
  Company Number: None

PATIENT
  Age: 51 Year
  Sex: Male
  Weight: 79.38 kg

DRUGS (15)
  1. OMEGA 3 [Concomitant]
     Active Substance: OMEGA-3 FATTY ACIDS
  2. DULOXETINE HCL [Suspect]
     Active Substance: DULOXETINE HYDROCHLORIDE
     Indication: NEUROLOGICAL SYMPTOM
     Dosage: 2 PILLS ONCE DAILY TAKEN BY MOUTH
     Route: 048
     Dates: start: 20150523, end: 20150620
  3. ZINC [Concomitant]
     Active Substance: ZINC\ZINC CHLORIDE
  4. HYDROCORTISONE. [Concomitant]
     Active Substance: HYDROCORTISONE
  5. D3 [Concomitant]
     Active Substance: 25-HYDROXYCHOLECALCIFEROL, 5-TRANS-
  6. BIOTIN [Concomitant]
     Active Substance: BIOTIN
  7. DIGESTA GUARD [Concomitant]
  8. SERRAPEPTASE [Concomitant]
     Active Substance: SERRAPEPTASE
  9. RIFAMPIN. [Concomitant]
     Active Substance: RIFAMPIN
  10. BOLUOKE LUMBARKINASE [Concomitant]
  11. VITAMIN B12 [Concomitant]
     Active Substance: CYANOCOBALAMIN
  12. MELOXICAM. [Concomitant]
     Active Substance: MELOXICAM
  13. HYDROXAZINE HCL [Concomitant]
  14. POTENT C [Concomitant]
  15. CLARITHROMYCIN. [Concomitant]
     Active Substance: CLARITHROMYCIN

REACTIONS (4)
  - Disease recurrence [None]
  - Product substitution issue [None]
  - Drug ineffective [None]
  - Product quality issue [None]

NARRATIVE: CASE EVENT DATE: 20150517
